FAERS Safety Report 12920502 (Version 2)
Quarter: 2016Q4

REPORT INFORMATION
  Report Type: Spontaneous
  Country: FR (occurrence: FR)
  Receive Date: 20161107
  Receipt Date: 20161117
  Transmission Date: 20170207
  Serious: Yes (Hospitalization)
  Sender: FDA-Public Use
  Company Number: FR-TEVA-708571ROM

PATIENT
  Age: 74 Year
  Sex: Male

DRUGS (1)
  1. DOXORUBICINE TEVA [Suspect]
     Active Substance: DOXORUBICIN
     Dosage: SINGLE ADMINISTARTION
     Route: 013
     Dates: start: 20150827, end: 20150827

REACTIONS (1)
  - Cholecystitis acute [Recovered/Resolved]

NARRATIVE: CASE EVENT DATE: 20150901
